FAERS Safety Report 4396169-8 (Version None)
Quarter: 2004Q3

REPORT INFORMATION
  Report Type: 
  Country: None (occurrence: None)
  Receive Date: 20040713
  Receipt Date: 20040331
  Transmission Date: 20050211
  Serious: Yes (Life-Threatening, Hospitalization, Other)
  Sender: FDA-Public Use
  Company Number: PHBS2004JP04542

PATIENT
  Age: 73 Year
  Sex: Male
  Weight: 47 kg

DRUGS (8)
  1. VOLTAREN [Suspect]
     Indication: PAIN IN EXTREMITY
     Dosage: 50 MG, ONCE/SINGLE
     Route: 054
     Dates: start: 20040329, end: 20040329
  2. GLIPIZIDE [Concomitant]
     Indication: DIABETES MELLITUS
     Dosage: 5 MG/DAY
     Route: 048
     Dates: start: 19990101
  3. ADETPHOS [Concomitant]
     Indication: DIZZINESS
     Dosage: 3 G/DAY
     Route: 048
     Dates: start: 20001201, end: 20031201
  4. COMELIAN [Concomitant]
     Indication: DIZZINESS
     Route: 048
     Dates: start: 20001201, end: 20031201
  5. CHOUTOUSAN [Concomitant]
     Dosage: UNK, UNK
     Route: 048
  6. GLYBURIDE [Concomitant]
     Dosage: 1.25 MG/DAY
     Dates: start: 20040301
  7. GOSHAJINKIGAN [Concomitant]
     Indication: DIZZINESS
     Dosage: 7.5 MG/DAY
     Route: 048
     Dates: start: 20020601, end: 20040601
  8. HERBAL EXTRACTS NOS [Concomitant]
     Dosage: 7.5 MG/DAY
     Route: 048
     Dates: start: 20020601, end: 20040601

REACTIONS (12)
  - ANAPHYLACTIC SHOCK [None]
  - CHEST PAIN [None]
  - COLITIS ISCHAEMIC [None]
  - DIARRHOEA HAEMORRHAGIC [None]
  - ERYTHEMA [None]
  - FEELING ABNORMAL [None]
  - HYPERHIDROSIS [None]
  - HYPOTENSION [None]
  - LOSS OF CONSCIOUSNESS [None]
  - PROCTITIS [None]
  - VASODILATATION [None]
  - VOMITING [None]
